FAERS Safety Report 25578774 (Version 2)
Quarter: 2025Q3

REPORT INFORMATION
  Report Type: Spontaneous
  Country: US (occurrence: US)
  Receive Date: 20250718
  Receipt Date: 20250814
  Transmission Date: 20251020
  Serious: No
  Sender: MYLAN
  Company Number: US-MYLANLABS-2025M1058228

PATIENT
  Age: 65 Year
  Sex: Male

DRUGS (4)
  1. PROCTOFOAM HC [Suspect]
     Active Substance: HYDROCORTISONE ACETATE\PRAMOXINE HYDROCHLORIDE
     Indication: Haemorrhoids
     Dosage: 1 PERCENT, QID (4 TIMES A DAY) FOR 7 DAYS
  2. PROCTOFOAM HC [Suspect]
     Active Substance: HYDROCORTISONE ACETATE\PRAMOXINE HYDROCHLORIDE
     Dosage: 1 PERCENT, QID (4 TIMES A DAY) FOR 7 DAYS
     Route: 065
  3. PROCTOFOAM HC [Suspect]
     Active Substance: HYDROCORTISONE ACETATE\PRAMOXINE HYDROCHLORIDE
     Dosage: 1 PERCENT, QID (4 TIMES A DAY) FOR 7 DAYS
     Route: 065
  4. PROCTOFOAM HC [Suspect]
     Active Substance: HYDROCORTISONE ACETATE\PRAMOXINE HYDROCHLORIDE
     Dosage: 1 PERCENT, QID (4 TIMES A DAY) FOR 7 DAYS

REACTIONS (3)
  - Pain [Unknown]
  - Product packaging quantity issue [Unknown]
  - Device delivery system issue [Unknown]

NARRATIVE: CASE EVENT DATE: 20250701
